FAERS Safety Report 6699577-5 (Version None)
Quarter: 2010Q2

REPORT INFORMATION
  Report Type: 
  Country: None (occurrence: None)
  Receive Date: 20100428
  Receipt Date: 20100419
  Transmission Date: 20101027
  Serious: Yes (Hospitalization)
  Sender: FDA-Public Use
  Company Number: US-BIOGENIDEC-2009BI038833

PATIENT
  Age: 44 Year
  Sex: Male

DRUGS (13)
  1. TYSABRI [Suspect]
     Indication: MULTIPLE SCLEROSIS
     Route: 042
     Dates: start: 20070419
  2. SANCTURA [Concomitant]
     Indication: NEUROGENIC BLADDER
     Route: 048
  3. AMANTADINE HCL [Concomitant]
     Indication: HEADACHE
     Route: 048
  4. CIALIS [Concomitant]
     Indication: ERECTILE DYSFUNCTION
     Route: 048
  5. VICODIN [Concomitant]
     Indication: PAIN
  6. WELLBUTRIN [Concomitant]
     Route: 048
  7. WELLBUTRIN [Concomitant]
     Route: 048
  8. ARICEPT [Concomitant]
     Route: 048
  9. HYOSCYAMINE [Concomitant]
     Route: 048
  10. PENTASA [Concomitant]
     Route: 048
  11. MULTI-VITAMIN [Concomitant]
     Route: 048
  12. DETROL [Concomitant]
     Route: 048
  13. FLONASE [Concomitant]
     Route: 055

REACTIONS (1)
  - CONVULSION [None]
